FAERS Safety Report 22595620 (Version 1)
Quarter: 2023Q2

REPORT INFORMATION
  Report Type: Spontaneous
  Country: US (occurrence: US)
  Receive Date: 20230613
  Receipt Date: 20230613
  Transmission Date: 20230722
  Serious: No
  Sender: FDA-Public Use
  Company Number: US-RIGEL PHARMACEUTICALS, INC.-2022FOS000655

PATIENT
  Age: 48 Year
  Sex: Female

DRUGS (2)
  1. TAVALISSE [Suspect]
     Active Substance: FOSTAMATINIB
     Indication: Thrombocytopenia
     Dosage: 150 MG, BID
     Route: 048
     Dates: start: 20200818
  2. COVID-19 VACCINE [Concomitant]
     Indication: COVID-19

REACTIONS (9)
  - Weight increased [Unknown]
  - Weight loss poor [Unknown]
  - COVID-19 [Recovered/Resolved]
  - Platelet count increased [Unknown]
  - Contusion [Unknown]
  - Sunburn [Unknown]
  - Impaired healing [None]
  - Off label use [Unknown]
  - Fatigue [Unknown]

NARRATIVE: CASE EVENT DATE: 20200818
